FAERS Safety Report 8803883 (Version 1)
Quarter: 2012Q4

REPORT INFORMATION
  Report Type: 
  Country: US (occurrence: US)
  Receive Date: 20120924
  Receipt Date: 20120924
  Transmission Date: 20130627
  Serious: No
  Sender: FDA-Public Use
  Company Number: US-PFIZER INC-2012231422

PATIENT

DRUGS (2)
  1. DETROL LA [Suspect]
     Dosage: UNK
  2. DETROL [Suspect]
     Dosage: UNK, 2x/day

REACTIONS (1)
  - Dry mouth [Unknown]
